FAERS Safety Report 8512735-X (Version None)
Quarter: 2012Q3

REPORT INFORMATION
  Report Type: 
  Country: None (occurrence: None)
  Receive Date: 20120716
  Receipt Date: 20120706
  Transmission Date: 20120928
  Serious: Yes (Other)
  Sender: FDA-Public Use
  Company Number: US-ASTRAZENECA-2009SE32566

PATIENT
  Age: 43 Year
  Sex: Female
  Weight: 99.8 kg

DRUGS (14)
  1. SEROQUEL [Suspect]
     Route: 048
  2. ATIVAN [Concomitant]
     Indication: ANXIETY
     Dosage: 0.5 PRN
  3. SEROQUEL [Suspect]
     Indication: DEPRESSION
     Route: 048
  4. LEVAMEIR [Concomitant]
     Indication: DIABETES MELLITUS
     Dosage: 110 U DAILY
  5. SEROQUEL [Suspect]
     Indication: ANXIETY
     Route: 048
  6. SEROQUEL [Suspect]
     Route: 048
  7. SEROQUEL [Suspect]
     Route: 048
  8. METHADON HCL TAB [Concomitant]
     Indication: PAIN
  9. SEROQUEL [Suspect]
     Route: 048
  10. SEROQUEL [Suspect]
     Route: 048
  11. LISINOPRIL [Concomitant]
     Indication: HYPERTENSION
     Dosage: 20/25 DAILY
  12. NOVOLIN 70/30 [Concomitant]
     Indication: DIABETES MELLITUS
     Dosage: 40 U DAILY
  13. PRILOSEC [Concomitant]
     Indication: GASTROOESOPHAGEAL REFLUX DISEASE
  14. SEROQUEL [Suspect]
     Route: 048

REACTIONS (12)
  - PANIC ATTACK [None]
  - BLOOD GLUCOSE INCREASED [None]
  - DRUG WITHDRAWAL SYNDROME [None]
  - FEELING ABNORMAL [None]
  - ABDOMINAL DISCOMFORT [None]
  - DRUG DOSE OMISSION [None]
  - DEPRESSION [None]
  - ANXIETY [None]
  - STAPHYLOCOCCAL INFECTION [None]
  - INSOMNIA [None]
  - MOOD ALTERED [None]
  - VOMITING [None]
